FAERS Safety Report 14843295 (Version 2)
Quarter: 2018Q4

REPORT INFORMATION
  Report Type: Spontaneous
  Country: FR (occurrence: FR)
  Receive Date: 20180503
  Receipt Date: 20181024
  Transmission Date: 20190204
  Serious: Yes (Hospitalization)
  Sender: FDA-Public Use
  Company Number: FR-PFIZER INC-2018175557

PATIENT
  Age: 56 Year
  Sex: Male

DRUGS (5)
  1. METHYLPREDNISOLONE SODIUM SUCCINATE. [Suspect]
     Active Substance: METHYLPREDNISOLONE SODIUM SUCCINATE
     Indication: NAUSEA
     Dosage: 60 MG, SINGLE
     Route: 042
     Dates: start: 20180219, end: 20180219
  2. IRINOTECAN HCL [Suspect]
     Active Substance: IRINOTECAN HYDROCHLORIDE
     Indication: COLON CANCER
     Dosage: 180 MG/M2, SINGLE
     Route: 042
     Dates: start: 20180219, end: 20180219
  3. ATROPINE. [Suspect]
     Active Substance: ATROPINE
     Indication: NAUSEA
     Dosage: 0.25 MG, SINGLE
     Route: 058
     Dates: start: 20180219, end: 20180219
  4. LEVOFOLINATE CALCIUM [Suspect]
     Active Substance: LEVOLEUCOVORIN CALCIUM
     Indication: COLON CANCER
     Dosage: 400 MG/M2, SINGLE
     Route: 042
     Dates: start: 20180219, end: 20180219
  5. ONDANSETRON [Suspect]
     Active Substance: ONDANSETRON
     Indication: NAUSEA
     Dosage: 8 MG, SINGLE
     Route: 042
     Dates: start: 20180219, end: 20180219

REACTIONS (5)
  - Abdominal pain upper [Recovered/Resolved]
  - Hypertension [Recovered/Resolved]
  - Hyperhidrosis [Recovered/Resolved]
  - Product use in unapproved indication [Recovered/Resolved]
  - Tachycardia [Recovered/Resolved]

NARRATIVE: CASE EVENT DATE: 20180219
